FAERS Safety Report 9675029 (Version 1)
Quarter: 2013Q4

REPORT INFORMATION
  Report Type: Spontaneous
  Country: TR (occurrence: TR)
  Receive Date: 20131107
  Receipt Date: 20131107
  Transmission Date: 20140711
  Serious: Yes (Hospitalization, Disabling, Other)
  Sender: FDA-Public Use
  Company Number: TR-RANBAXY-2013RR-74900

PATIENT
  Age: 73 Year
  Sex: Female

DRUGS (7)
  1. OLANZAPINE [Suspect]
     Indication: BIPOLAR DISORDER
     Dosage: UNK
     Route: 065
  2. FLUVOXAMINE [Suspect]
     Indication: BIPOLAR DISORDER
     Dosage: UNK
     Route: 065
  3. DONEPEZIL [Suspect]
     Indication: BIPOLAR DISORDER
     Dosage: UNK
     Route: 065
  4. DIAZEPAM [Suspect]
     Indication: TOXICITY TO VARIOUS AGENTS
     Dosage: UNK
     Route: 051
  5. VALPROIC ACID [Suspect]
     Indication: TOXICITY TO VARIOUS AGENTS
     Dosage: UNK
     Route: 051
  6. VALPROIC ACID [Suspect]
     Indication: TOXICITY TO VARIOUS AGENTS
     Dosage: 2000 MG/DAY
     Route: 065
  7. LITHIUM [Suspect]
     Indication: BIPOLAR DISORDER
     Dosage: UNK
     Route: 065

REACTIONS (4)
  - Toxicity to various agents [Recovering/Resolving]
  - Eating disorder [Unknown]
  - Dehydration [Unknown]
  - Prerenal failure [Unknown]
